FAERS Safety Report 10416776 (Version 1)
Quarter: 2014Q3

REPORT INFORMATION
  Report Type: Spontaneous
  Country: US (occurrence: None)
  Receive Date: 20140826
  Receipt Date: 20140826
  Transmission Date: 20150326
  Serious: Yes (Other)
  Sender: FDA-Public Use
  Company Number: US-H14001-14-00423

PATIENT
  Age: 55 Year
  Sex: Male

DRUGS (6)
  1. FENTANYL (FENTANYL) [Suspect]
     Active Substance: FENTANYL
     Indication: PAIN
     Route: 042
  2. ESCITALOPRAM [Suspect]
     Active Substance: ESCITALOPRAM OXALATE
     Indication: PRODUCT USED FOR UNKNOWN INDICATION
  3. PIPERACILLIN-TAZOBACTAM (PIP/TAZO) [Concomitant]
  4. LINEZOLID (LINEZOLID) [Concomitant]
     Active Substance: LINEZOLID
     Indication: ANTIBIOTIC THERAPY
  5. TRAZODONE [Suspect]
     Active Substance: TRAZODONE HYDROCHLORIDE
     Indication: PRODUCT USED FOR UNKNOWN INDICATION
  6. VANCOMYCIN [Concomitant]
     Active Substance: VANCOMYCIN

REACTIONS (9)
  - Serotonin syndrome [None]
  - Liver transplant [None]
  - Small intestinal obstruction [None]
  - Platelet count decreased [None]
  - Platelet dysfunction [None]
  - Cerebral haemorrhage [None]
  - Enterococcus test positive [None]
  - Intraventricular haemorrhage [None]
  - Drug interaction [None]
